FAERS Safety Report 18986863 (Version 1)
Quarter: 2021Q1

REPORT INFORMATION
  Report Type: Spontaneous
  Country: US (occurrence: US)
  Receive Date: 20210309
  Receipt Date: 20210309
  Transmission Date: 20210420
  Serious: Yes (Life-Threatening)
  Sender: FDA-Public Use
  Company Number: None

PATIENT
  Age: 15 Year
  Sex: Male
  Weight: 93.2 kg

DRUGS (4)
  1. BAMLANIVIMAB. [Suspect]
     Active Substance: BAMLANIVIMAB
     Indication: COVID-19
     Route: 041
     Dates: start: 20210204, end: 20210204
  2. ASPIRIN 81 MG EC TABLET [Concomitant]
     Dates: start: 20210113
  3. TYLENOL [Concomitant]
     Active Substance: ACETAMINOPHEN
     Dates: start: 20210201
  4. TACROLIMUS 0.5 CAPSULE [Concomitant]
     Dates: start: 20201203, end: 20210203

REACTIONS (3)
  - Flushing [None]
  - Feeling hot [None]
  - Throat irritation [None]

NARRATIVE: CASE EVENT DATE: 20210204
